FAERS Safety Report 8313573 (Version 2)
Quarter: 2014Q2

REPORT INFORMATION
  Report Type: Report from Study
  Country: US (occurrence: US)
  Receive Date: 20111228
  Receipt Date: 20140612
  Transmission Date: 20141212
  Serious: Yes (Hospitalization)
  Sender: FDA-Public Use
  Company Number: US-ROCHE-1011519

PATIENT
  Age: 23 Year
  Sex: Male

DRUGS (6)
  1. MYCOPHENOLATE MOFETIL [Suspect]
     Indication: PRODUCT USED FOR UNKNOWN INDICATION
     Route: 065
     Dates: start: 20060503
  2. BELATACEPT [Suspect]
     Indication: RENAL TRANSPLANT
     Dosage: DOSE IS BLINDED
     Route: 042
     Dates: start: 20060503, end: 20060713
  3. PREDNISONE [Suspect]
     Indication: PRODUCT USED FOR UNKNOWN INDICATION
     Route: 065
     Dates: start: 20060503
  4. THYMOGLOBULIN [Concomitant]
     Route: 065
     Dates: start: 20060718, end: 20060727
  5. PROGRAF [Concomitant]
     Route: 065
     Dates: start: 20060726
  6. METHYLPREDNISOLON [Concomitant]
     Route: 042
     Dates: start: 20060717, end: 20060717

REACTIONS (5)
  - Post transplant lymphoproliferative disorder [Not Recovered/Not Resolved]
  - Kidney transplant rejection [Unknown]
  - Neutropenia [Recovered/Resolved with Sequelae]
  - Renal haemorrhage [Unknown]
  - BK virus infection [Unknown]
